FAERS Safety Report 17820937 (Version 3)
Quarter: 2020Q3

REPORT INFORMATION
  Report Type: Report from Study
  Country: AR (occurrence: AR)
  Receive Date: 20200525
  Receipt Date: 20200804
  Transmission Date: 20201102
  Serious: Yes (Hospitalization)
  Sender: FDA-Public Use
  Company Number: AR-AMGEN-ARGSL2020063861

PATIENT
  Age: 41 Year
  Sex: Male

DRUGS (1)
  1. VECTIBIX [Suspect]
     Active Substance: PANITUMUMAB
     Indication: COLORECTAL CANCER METASTATIC
     Dosage: UNK UNK, Q2WK (EVERY 14 DAYS)
     Route: 065
     Dates: start: 20200408

REACTIONS (4)
  - Rash [Not Recovered/Not Resolved]
  - Laboratory test abnormal [Unknown]
  - Xerosis [Not Recovered/Not Resolved]
  - Feeling abnormal [Unknown]

NARRATIVE: CASE EVENT DATE: 2020
